FAERS Safety Report 9181640 (Version 2)
Quarter: 2013Q2

REPORT INFORMATION
  Report Type: Spontaneous
  Country: SE (occurrence: SE)
  Receive Date: 20130322
  Receipt Date: 20130405
  Transmission Date: 20140414
  Serious: Yes (Other)
  Sender: FDA-Public Use
  Company Number: SE-JNJFOC-20130308934

PATIENT
  Sex: Female

DRUGS (6)
  1. IPREN [Suspect]
     Indication: MORTON^S NEURALGIA
     Route: 065
     Dates: start: 2012, end: 20130103
  2. FARESTON [Suspect]
     Indication: PRODUCT USED FOR UNKNOWN INDICATION
     Route: 065
     Dates: start: 2012, end: 2012
  3. LETROZOLE [Suspect]
     Indication: PRODUCT USED FOR UNKNOWN INDICATION
     Route: 065
     Dates: start: 2012, end: 2012
  4. TAMOXIFEN [Suspect]
     Indication: OSTEOPENIA
     Route: 065
     Dates: start: 2012, end: 2012
  5. TAMOXIFEN [Suspect]
     Indication: OSTEOPOROSIS
     Route: 065
     Dates: start: 2012, end: 2012
  6. AROMASIN [Concomitant]
     Route: 065

REACTIONS (2)
  - Angioedema [Unknown]
  - Lip swelling [Unknown]
